FAERS Safety Report 17355114 (Version 1)
Quarter: 2020Q1

REPORT INFORMATION
  Report Type: Spontaneous
  Country: US (occurrence: US)
  Receive Date: 20200131
  Receipt Date: 20200131
  Transmission Date: 20200409
  Serious: Yes (Other)
  Sender: FDA-Public Use
  Company Number: NVSC2020US023270

PATIENT
  Age: 68 Year
  Sex: Male

DRUGS (2)
  1. ISAVUCONAZONIUM [Concomitant]
     Active Substance: ISAVUCONAZONIUM
     Indication: ANTIFUNGAL PROPHYLAXIS
     Dosage: UNK
     Route: 065
  2. DECITABINE. [Suspect]
     Active Substance: DECITABINE
     Indication: ACUTE MYELOID LEUKAEMIA REFRACTORY
     Dosage: UNK
     Route: 065

REACTIONS (2)
  - Aspergillus infection [Unknown]
  - Product use in unapproved indication [Unknown]
